FAERS Safety Report 6161667-3 (Version None)
Quarter: 2009Q2

REPORT INFORMATION
  Report Type: 
  Country: None (occurrence: None)
  Receive Date: 20090421
  Receipt Date: 20090415
  Transmission Date: 20091009
  Serious: Yes (Other)
  Sender: FDA-Public Use
  Company Number: US-ASTRAZENECA-2009UW07797

PATIENT
  Age: 59 Year
  Sex: Female

DRUGS (7)
  1. CRESTOR [Suspect]
     Indication: BLOOD CHOLESTEROL INCREASED
     Route: 048
     Dates: end: 20090101
  2. CRESTOR [Suspect]
     Route: 048
     Dates: start: 20090101
  3. ASPIRIN [Concomitant]
  4. MULTI-VITAMIN [Concomitant]
  5. FISH OIL [Concomitant]
  6. CALCIUM [Concomitant]
  7. VITAMIN E [Concomitant]

REACTIONS (6)
  - AMNESIA [None]
  - DIZZINESS [None]
  - GLOBAL AMNESIA [None]
  - HOT FLUSH [None]
  - MYALGIA [None]
  - NECK PAIN [None]
